FAERS Safety Report 9437096 (Version 1)
Quarter: 2013Q3

REPORT INFORMATION
  Report Type: Spontaneous
  Country: JP (occurrence: JP)
  Receive Date: 20130802
  Receipt Date: 20130802
  Transmission Date: 20140515
  Serious: Yes (Other)
  Sender: FDA-Public Use
  Company Number: JP-ASTELLAS-2013JP008040

PATIENT
  Age: 39 Year
  Sex: Female

DRUGS (2)
  1. PROGRAF [Suspect]
     Route: 065
  2. ACICLOVIR [Concomitant]
     Indication: ANTIVIRAL PROPHYLAXIS
     Route: 065

REACTIONS (2)
  - Drug ineffective [Unknown]
  - Acute graft versus host disease [Recovering/Resolving]
